FAERS Safety Report 12741408 (Version 3)
Quarter: 2017Q3

REPORT INFORMATION
  Report Type: Spontaneous
  Country: US (occurrence: US)
  Receive Date: 20160914
  Receipt Date: 20170717
  Transmission Date: 20171127
  Serious: Yes (Other)
  Sender: FDA-Public Use
  Company Number: US-PFIZER INC-2016427054

PATIENT
  Age: 37 Year
  Sex: Female
  Weight: 87.98 kg

DRUGS (4)
  1. TESSALON [Concomitant]
     Active Substance: BENZONATATE
     Indication: COUGH
     Dosage: 1-2 CAPS, 3X/DAY
     Route: 048
     Dates: start: 20170120
  2. PNV PLUS [Concomitant]
     Indication: MINERAL SUPPLEMENTATION
     Dosage: 27 MG, DAILY
     Route: 048
     Dates: start: 20160913, end: 20170120
  3. DEPO-PROVERA [Suspect]
     Active Substance: MEDROXYPROGESTERONE ACETATE
     Indication: CONTRACEPTION
     Dosage: 150 MG, EVERY 3 MONTHS
     Route: 030
     Dates: start: 20150924, end: 20160920
  4. OMEPRAZOLE. [Concomitant]
     Active Substance: OMEPRAZOLE
     Indication: GASTROOESOPHAGEAL REFLUX DISEASE
     Dosage: 20 MG, DAILY
     Route: 048
     Dates: start: 20160816, end: 20170120

REACTIONS (3)
  - Unintended pregnancy [Unknown]
  - Abortion spontaneous [Unknown]
  - Drug ineffective [Unknown]

NARRATIVE: CASE EVENT DATE: 20161011
